FAERS Safety Report 18769641 (Version 4)
Quarter: 2021Q4

REPORT INFORMATION
  Report Type: Spontaneous
  Country: US (occurrence: US)
  Receive Date: 20210121
  Receipt Date: 20211027
  Transmission Date: 20220303
  Serious: Yes (Hospitalization, Other)
  Sender: FDA-Public Use
  Company Number: US-BRISTOL-MYERS SQUIBB COMPANY-BMS-2021-003788

PATIENT
  Age: 74 Year
  Sex: Female
  Weight: 53.97 kg

DRUGS (6)
  1. ELIQUIS [Suspect]
     Active Substance: APIXABAN
     Indication: Product used for unknown indication
     Dosage: UNK
     Route: 065
  2. TYVASO [Suspect]
     Active Substance: TREPROSTINIL
     Indication: Pulmonary arterial hypertension
     Dosage: 18-54 MICROGRAM, QID
     Dates: start: 20171017
  3. TYVASO [Suspect]
     Active Substance: TREPROSTINIL
     Dosage: 42 MICROGRAM, QID
     Dates: start: 202012, end: 202012
  4. TYVASO [Suspect]
     Active Substance: TREPROSTINIL
     Dosage: 6 MICROGRAM, QID
     Dates: start: 202012
  5. OPSUMIT [Suspect]
     Active Substance: MACITENTAN
     Indication: Product used for unknown indication
     Dosage: UNK
     Route: 065
  6. ADEMPAS [Suspect]
     Active Substance: RIOCIGUAT
     Indication: Product used for unknown indication
     Dosage: UNK
     Route: 065

REACTIONS (13)
  - COVID-19 [Unknown]
  - Contusion [Unknown]
  - Fall [Recovered/Resolved with Sequelae]
  - Blood pressure decreased [Unknown]
  - Deafness [Unknown]
  - Ear infection [Not Recovered/Not Resolved]
  - Weight decreased [Unknown]
  - Decreased appetite [Unknown]
  - Asthenia [Unknown]
  - Back pain [Unknown]
  - Gait disturbance [Unknown]
  - Lactose intolerance [Unknown]
  - Drug intolerance [Unknown]

NARRATIVE: CASE EVENT DATE: 20201201
